FAERS Safety Report 21591953 (Version 2)
Quarter: 2022Q4

REPORT INFORMATION
  Report Type: Spontaneous
  Country: GB (occurrence: GB)
  Receive Date: 20221114
  Receipt Date: 20221121
  Transmission Date: 20230113
  Serious: Yes (Life-Threatening, Other)
  Sender: FDA-Public Use
  Company Number: None

PATIENT
  Age: 54 Year
  Sex: Female
  Weight: 66 kg

DRUGS (7)
  1. TACLONEX [Suspect]
     Active Substance: BETAMETHASONE DIPROPIONATE\CALCIPOTRIENE\CALCIPOTRIENE HYDRATE
     Indication: Psoriasis
     Dosage: 120 GRAM
     Route: 003
     Dates: start: 20200817, end: 20220228
  2. TACLONEX [Suspect]
     Active Substance: BETAMETHASONE DIPROPIONATE\CALCIPOTRIENE\CALCIPOTRIENE HYDRATE
     Indication: Psoriasis
     Dosage: 120 GRAM
     Route: 003
     Dates: start: 20200817, end: 20220228
  3. TACLONEX [Suspect]
     Active Substance: BETAMETHASONE DIPROPIONATE\CALCIPOTRIENE\CALCIPOTRIENE HYDRATE
     Indication: Psoriasis
     Dosage: 120 GRAM
     Route: 003
     Dates: start: 20200817, end: 20220228
  4. TACLONEX [Suspect]
     Active Substance: BETAMETHASONE DIPROPIONATE\CALCIPOTRIENE\CALCIPOTRIENE HYDRATE
     Indication: Psoriasis
     Dosage: 120 GRAM
     Route: 003
     Dates: start: 20200817, end: 20220228
  5. TACLONEX [Suspect]
     Active Substance: BETAMETHASONE DIPROPIONATE\CALCIPOTRIENE\CALCIPOTRIENE HYDRATE
     Indication: Psoriasis
     Dosage: 120 GRAM
     Route: 003
     Dates: start: 20200817, end: 20220228
  6. TACLONEX [Suspect]
     Active Substance: BETAMETHASONE DIPROPIONATE\CALCIPOTRIENE\CALCIPOTRIENE HYDRATE
     Indication: Psoriasis
     Dosage: 120 GRAM
     Route: 003
     Dates: start: 20200817, end: 20220228
  7. TACLONEX [Suspect]
     Active Substance: BETAMETHASONE DIPROPIONATE\CALCIPOTRIENE\CALCIPOTRIENE HYDRATE
     Indication: Psoriasis
     Dosage: 120 GRAM
     Route: 003
     Dates: start: 20200817, end: 20220228

REACTIONS (1)
  - Topical steroid withdrawal reaction [Recovered/Resolved]

NARRATIVE: CASE EVENT DATE: 20220323
